FAERS Safety Report 9165786 (Version 3)
Quarter: 2013Q2

REPORT INFORMATION
  Report Type: Spontaneous
  Country: SE (occurrence: SE)
  Receive Date: 20130315
  Receipt Date: 20130618
  Transmission Date: 20140414
  Serious: Yes (Hospitalization)
  Sender: FDA-Public Use
  Company Number: SE-ROCHE-1202121

PATIENT
  Age: 67 Year
  Sex: Female

DRUGS (11)
  1. ROACTEMRA [Suspect]
     Indication: PRODUCT USED FOR UNKNOWN INDICATION
     Route: 065
     Dates: start: 201202, end: 201205
  2. HUMIRA [Suspect]
     Indication: PRODUCT USED FOR UNKNOWN INDICATION
     Route: 065
     Dates: start: 201205, end: 201207
  3. LORATADIN [Concomitant]
     Route: 065
  4. OMEPRAZOLE [Concomitant]
     Route: 065
  5. BEHEPAN INJECTION [Concomitant]
     Dosage: 1 MG/ML
     Route: 065
  6. MOLLIPECT [Concomitant]
     Dosage: 0.5 MG/ML PLUS 1 MG/ML
     Route: 065
  7. DIMETICON [Concomitant]
     Route: 065
  8. PULMICORT TURBUHALER [Concomitant]
     Route: 065
  9. LECROLYN [Concomitant]
     Dosage: SOLUTION 40 MG/ML
     Route: 065
  10. DIPRODERM [Concomitant]
     Dosage: SOLUTION 0.05%
     Route: 065
  11. INOLAXOL [Concomitant]
     Dosage: INOLAXOL 99 POWDER
     Route: 065

REACTIONS (4)
  - Fatigue [Not Recovered/Not Resolved]
  - Lung infiltration [Not Recovered/Not Resolved]
  - Dyspnoea [Not Recovered/Not Resolved]
  - Cough [Not Recovered/Not Resolved]
